FAERS Safety Report 6572450-9 (Version None)
Quarter: 2010Q1

REPORT INFORMATION
  Report Type: 
  Country: None (occurrence: None)
  Receive Date: 20100205
  Receipt Date: 20100127
  Transmission Date: 20100710
  Serious: Yes (Hospitalization)
  Sender: FDA-Public Use
  Company Number: BE-PFIZER INC-2010003983

PATIENT
  Age: 58 Year
  Sex: Female
  Weight: 54.1 kg

DRUGS (5)
  1. LYRICA [Suspect]
     Indication: PAIN
     Dosage: 75 MG, 2X/DAY
     Route: 048
     Dates: start: 20091216
  2. FELDENE [Suspect]
     Indication: PAIN
     Dosage: 20 MG, 1X/DAY
     Route: 048
     Dates: start: 20091230, end: 20100106
  3. MEDROL [Suspect]
     Dosage: 16 MG, 1X/DAY
     Route: 048
     Dates: start: 20091216, end: 20100106
  4. VINORELBINE [Suspect]
     Indication: BREAST CANCER
     Dosage: 250 MG/M2, WEEKLY
     Route: 042
     Dates: start: 20091118, end: 20091230
  5. TRANSTEC TTS [Suspect]
     Indication: PAIN
     Dosage: UNK
     Route: 062
     Dates: start: 20091118

REACTIONS (7)
  - BACTERIAL TEST POSITIVE [None]
  - DEHYDRATION [None]
  - HAEMOGLOBINURIA [None]
  - INFECTION [None]
  - LEUKOCYTURIA [None]
  - RENAL FAILURE [None]
  - TUMOUR PAIN [None]
